FAERS Safety Report 14508234 (Version 1)
Quarter: 2018Q1

REPORT INFORMATION
  Report Type: Spontaneous
  Country: FR (occurrence: FR)
  Receive Date: 20180209
  Receipt Date: 20180209
  Transmission Date: 20180509
  Serious: Yes (Other)
  Sender: FDA-Public Use
  Company Number: FR-MERCK KGAA-2041669

PATIENT
  Age: 76 Year
  Sex: Female

DRUGS (4)
  1. LEVOTHYROXINE SODIUM. [Suspect]
     Active Substance: LEVOTHYROXINE SODIUM
     Dates: start: 20170904, end: 20180121
  2. NOVOTHYROX [Suspect]
     Active Substance: LEVOTHYROXINE SODIUM
     Indication: POST PROCEDURAL HYPOTHYROIDISM
     Dates: start: 201102
  3. METFORMIN [Concomitant]
     Active Substance: METFORMIN HYDROCHLORIDE
     Dates: end: 20180121
  4. LIPANOR [Concomitant]
     Active Substance: CIPROFIBRATE

REACTIONS (9)
  - Headache [None]
  - Abdominal discomfort [None]
  - Fatigue [Not Recovered/Not Resolved]
  - Paraesthesia [Not Recovered/Not Resolved]
  - Vertigo [None]
  - Somnolence [Not Recovered/Not Resolved]
  - Diabetes mellitus [None]
  - Pain [None]
  - Middle insomnia [Not Recovered/Not Resolved]

NARRATIVE: CASE EVENT DATE: 2017
